FAERS Safety Report 5195504-0 (Version None)
Quarter: 2006Q4

REPORT INFORMATION
  Report Type: 
  Country: None (occurrence: None)
  Receive Date: 20061222
  Receipt Date: 20061222
  Transmission Date: 20070319
  Serious: Yes (Hospitalization)
  Sender: FDA-Public Use
  Company Number: None

PATIENT
  Age: 18 Year
  Sex: Male

DRUGS (3)
  1. CEFDITOREN PIVOXIL 100MG [Suspect]
     Indication: PHARYNGITIS
     Dosage: 100 MG/DAY ORAL
     Route: 048
     Dates: start: 20061030
  2. CALONAL (ACETAMINOPHEN) [Concomitant]
  3. SOLANTAL (TIARAMIDE HYDROCHLORIDE) [Concomitant]

REACTIONS (3)
  - ANAPHYLACTIC SHOCK [None]
  - DYSPNOEA [None]
  - SKIN TEST POSITIVE [None]
